FAERS Safety Report 12632068 (Version 2)
Quarter: 2016Q3

REPORT INFORMATION
  Report Type: Spontaneous
  Country: US (occurrence: US)
  Receive Date: 20160808
  Receipt Date: 20160808
  Transmission Date: 20161109
  Serious: No
  Sender: FDA-Public Use
  Company Number: US-BEH-2016061833

PATIENT
  Sex: Female
  Weight: 65 kg

DRUGS (21)
  1. DIPHENHYDRAMINE. [Concomitant]
     Active Substance: DIPHENHYDRAMINE
  2. ZOFRAN [Concomitant]
     Active Substance: ONDANSETRON HYDROCHLORIDE
  3. HYDROCORTISONE. [Concomitant]
     Active Substance: HYDROCORTISONE
  4. HIZENTRA [Suspect]
     Active Substance: HUMAN IMMUNOGLOBULIN G
     Indication: IMMUNODEFICIENCY COMMON VARIABLE
     Route: 058
     Dates: start: 20150806
  5. ZIPSOR [Concomitant]
     Active Substance: DICLOFENAC POTASSIUM
  6. TRIAMCINOL [Concomitant]
  7. VITAMIN D [Concomitant]
     Active Substance: CHOLECALCIFEROL
  8. LIDOCAINE. [Concomitant]
     Active Substance: LIDOCAINE
  9. CYANOCOBALAMIN. [Concomitant]
     Active Substance: CYANOCOBALAMIN
  10. FOLIC ACID. [Concomitant]
     Active Substance: FOLIC ACID
  11. SINGULAIR [Concomitant]
     Active Substance: MONTELUKAST SODIUM
  12. ACETAMINOPHEN. [Concomitant]
     Active Substance: ACETAMINOPHEN
  13. ALVESCO [Concomitant]
     Active Substance: CICLESONIDE
  14. TEGRETOL [Concomitant]
     Active Substance: CARBAMAZEPINE
  15. TOPAMAX [Concomitant]
     Active Substance: TOPIRAMATE
  16. EPIPEN [Concomitant]
     Active Substance: EPINEPHRINE
  17. NEURONTIN [Concomitant]
     Active Substance: GABAPENTIN
  18. SYNTHROID [Concomitant]
     Active Substance: LEVOTHYROXINE SODIUM
  19. XANAX [Concomitant]
     Active Substance: ALPRAZOLAM
  20. NEXIUM [Concomitant]
     Active Substance: ESOMEPRAZOLE MAGNESIUM
  21. FENTANYL. [Concomitant]
     Active Substance: FENTANYL

REACTIONS (1)
  - Headache [Unknown]
